FAERS Safety Report 14391620 (Version 2)
Quarter: 2018Q2

REPORT INFORMATION
  Report Type: Spontaneous
  Country: US (occurrence: US)
  Receive Date: 20180116
  Receipt Date: 20180426
  Transmission Date: 20180711
  Serious: Yes (Other)
  Sender: FDA-Public Use
  Company Number: US-BRISTOL-MYERS SQUIBB COMPANY-BMS-2018-001614

PATIENT
  Age: 88 Year
  Sex: Male

DRUGS (1)
  1. OPDIVO [Suspect]
     Active Substance: NIVOLUMAB
     Indication: MALIGNANT MELANOMA
     Dosage: UNK, Q2WK
     Route: 042

REACTIONS (7)
  - Malignant neoplasm progression [Unknown]
  - Peripheral swelling [Unknown]
  - Inflammation [Unknown]
  - Decreased appetite [Unknown]
  - Asthenia [Unknown]
  - Gastritis [Unknown]
  - Muscular weakness [Unknown]
